FAERS Safety Report 6429630-2 (Version None)
Quarter: 2009Q4

REPORT INFORMATION
  Report Type: 
  Country: None (occurrence: None)
  Receive Date: 20091103
  Receipt Date: 20091019
  Transmission Date: 20100525
  Serious: Yes (Hospitalization)
  Sender: FDA-Public Use
  Company Number: 02100-JPN-05-0597

PATIENT
  Age: 63 Year
  Sex: Female
  Weight: 53 kg

DRUGS (6)
  1. PLETAL [Suspect]
     Indication: CEREBRAL INFARCTION
     Dosage: 81 MG, QD ORAL
     Route: 048
     Dates: start: 20040708, end: 20051208
  2. MAGNESIUM OXIDE (MAGNESIUM OXIDE) [Concomitant]
  3. CANDESARTAN CILEXETIL [Concomitant]
  4. TRICHLORMETHIAZIDE [Concomitant]
  5. AMLODIPINE BESYLATE [Concomitant]
  6. SERENACE (HALOPERIDOL) [Concomitant]

REACTIONS (2)
  - COLITIS ISCHAEMIC [None]
  - HAEMORRHOIDS [None]
